FAERS Safety Report 4425466-2 (Version None)
Quarter: 2004Q3

REPORT INFORMATION
  Report Type: 
  Country: None (occurrence: None)
  Receive Date: 20040813
  Receipt Date: 20040805
  Transmission Date: 20050211
  Serious: Yes (Hospitalization)
  Sender: FDA-Public Use
  Company Number: BR-ROCHE-376925

PATIENT
  Age: 13 Year
  Sex: Male
  Weight: 59 kg

DRUGS (2)
  1. RIVOTRIL [Suspect]
     Indication: NERVOUSNESS
     Route: 048
     Dates: start: 20040415
  2. TOFRANIL [Suspect]
     Indication: DRUG USE FOR UNKNOWN INDICATION
     Route: 048
     Dates: end: 20040615

REACTIONS (2)
  - DRUG INEFFECTIVE [None]
  - EPILEPSY [None]
